FAERS Safety Report 7255866-7 (Version None)
Quarter: 2011Q1

REPORT INFORMATION
  Report Type: 
  Country: None (occurrence: None)
  Receive Date: 20110129
  Receipt Date: 20100505
  Transmission Date: 20110831
  Serious: No
  Sender: FDA-Public Use
  Company Number: US-ABBOTT-10P-163-0637615-00

PATIENT
  Sex: Female
  Weight: 75.818 kg

DRUGS (10)
  1. NEURONTIN [Concomitant]
     Indication: SARCOIDOSIS
  2. METHOTREXATE [Concomitant]
  3. METHOTREXATE [Concomitant]
     Indication: RHEUMATOID ARTHRITIS
     Dosage: 5X A DAY
     Dates: start: 20100405
  4. METHOTREXATE [Concomitant]
     Indication: SARCOIDOSIS
  5. FOLIC ACID [Concomitant]
     Indication: RHEUMATOID ARTHRITIS
     Dates: start: 20100405
  6. FOLIC ACID [Concomitant]
     Indication: SARCOIDOSIS
  7. NEURONTIN [Concomitant]
     Indication: HEADACHE
  8. HUMIRA [Suspect]
     Indication: RHEUMATOID ARTHRITIS
     Dates: start: 20040101, end: 20040101
  9. HUMIRA [Suspect]
     Indication: SARCOIDOSIS
     Dates: start: 20100405
  10. METHOTREXATE [Concomitant]
     Dates: start: 20100405

REACTIONS (3)
  - DRUG INEFFECTIVE [None]
  - ARTHRALGIA [None]
  - HEADACHE [None]
